FAERS Safety Report 21188490 (Version 1)
Quarter: 2022Q3

REPORT INFORMATION
  Report Type: Spontaneous
  Country: None (occurrence: US)
  Receive Date: 20220809
  Receipt Date: 20220809
  Transmission Date: 20221027
  Serious: No
  Sender: FDA-Public Use
  Company Number: US-IGSA-BIG0015241

PATIENT
  Age: 75 Year
  Sex: Female

DRUGS (2)
  1. GAMUNEX-C [Suspect]
     Active Substance: HUMAN IMMUNOGLOBULIN G
     Indication: Secondary immunodeficiency
     Dosage: 40 GRAM, Q.M.T.
     Route: 042
     Dates: start: 20210519, end: 20210519
  2. GAMUNEX-C [Suspect]
     Active Substance: HUMAN IMMUNOGLOBULIN G
     Indication: Off label use
     Dosage: 40 GRAM, Q.M.T.
     Route: 042
     Dates: start: 20210622, end: 20210622

REACTIONS (3)
  - Fatigue [Unknown]
  - Disturbance in attention [Unknown]
  - Dehydration [Unknown]

NARRATIVE: CASE EVENT DATE: 20210501
